FAERS Safety Report 11169708 (Version 1)
Quarter: 2015Q2

REPORT INFORMATION
  Report Type: Spontaneous
  Country: US (occurrence: US)
  Receive Date: 20150606
  Receipt Date: 20150606
  Transmission Date: 20150821
  Serious: Yes (Death)
  Sender: FDA-Public Use
  Company Number: US-JNJFOC-20090705281

PATIENT

DRUGS (1)
  1. TYLENOL ANALGESIC UNKNOWN [Suspect]
     Active Substance: ACETAMINOPHEN
     Indication: PRODUCT USED FOR UNKNOWN INDICATION
     Route: 048

REACTIONS (4)
  - Liver injury [Fatal]
  - Unevaluable event [Fatal]
  - Death [Fatal]
  - Overdose [Fatal]
